FAERS Safety Report 8484832-9 (Version None)
Quarter: 2012Q3

REPORT INFORMATION
  Report Type: 
  Country: None (occurrence: None)
  Receive Date: 20120703
  Receipt Date: 20120627
  Transmission Date: 20120928
  Serious: Yes (Hospitalization)
  Sender: FDA-Public Use
  Company Number: FR-PFIZER INC-2012149611

PATIENT
  Age: 83 Year
  Sex: Male

DRUGS (5)
  1. EUPHYLLIN [Concomitant]
  2. IRBESARTAN AND HYDROCHLOROTHIAZIDE [Concomitant]
  3. SUTENT [Suspect]
     Dosage: UNK
     Dates: start: 20100510, end: 20100530
  4. AMIODARONE [Concomitant]
  5. SUTENT [Suspect]
     Indication: RENAL CANCER
     Dosage: UNK
     Dates: start: 20100329

REACTIONS (3)
  - ELECTROCARDIOGRAM QT PROLONGED [None]
  - HYPOKALAEMIA [None]
  - MALAISE [None]
